FAERS Safety Report 12954249 (Version 1)
Quarter: 2016Q4

REPORT INFORMATION
  Report Type: Spontaneous
  Country: US (occurrence: US)
  Receive Date: 20161117
  Receipt Date: 20161117
  Transmission Date: 20170207
  Serious: Yes (Other)
  Sender: FDA-Public Use
  Company Number: None

PATIENT
  Age: 80 Year
  Sex: Male

DRUGS (2)
  1. ALECENSA [Suspect]
     Active Substance: ALECTINIB HYDROCHLORIDE
     Indication: NEOPLASM MALIGNANT
     Route: 048
     Dates: start: 20161018, end: 20161112
  2. FENTANYL. [Concomitant]
     Active Substance: FENTANYL

REACTIONS (1)
  - Lung neoplasm malignant [None]

NARRATIVE: CASE EVENT DATE: 20161112
